FAERS Safety Report 15487084 (Version 1)
Quarter: 2018Q4

REPORT INFORMATION
  Report Type: Spontaneous
  Country: GB (occurrence: GB)
  Receive Date: 20181011
  Receipt Date: 20181011
  Transmission Date: 20190205
  Serious: Yes (Hospitalization)
  Sender: FDA-Public Use
  Company Number: GB-TEVA-184314ISR

PATIENT
  Age: 60 Year
  Sex: Female

DRUGS (6)
  1. GANCICLOVIR. [Concomitant]
     Active Substance: GANCICLOVIR
     Route: 048
  2. GANCICLOVIR. [Concomitant]
     Active Substance: GANCICLOVIR
     Indication: PRODUCT USED FOR UNKNOWN INDICATION
     Route: 042
  3. TAZOCIN [Concomitant]
     Active Substance: PIPERACILLIN SODIUM\TAZOBACTAM SODIUM
     Route: 048
  4. TAZOCIN [Concomitant]
     Active Substance: PIPERACILLIN SODIUM\TAZOBACTAM SODIUM
     Indication: LOWER RESPIRATORY TRACT INFECTION
     Dosage: 4.5G THREE TIMES DAILY (4.5 GRAM,3 IN 1 D)
     Route: 042
  5. TACROLIMUS. [Suspect]
     Active Substance: TACROLIMUS
     Indication: PRODUCT USED FOR UNKNOWN INDICATION
     Route: 065
  6. AZATHIOPRINE. [Suspect]
     Active Substance: AZATHIOPRINE
     Indication: PRODUCT USED FOR UNKNOWN INDICATION
     Route: 065

REACTIONS (18)
  - Pallor [Unknown]
  - Haemoglobin decreased [Unknown]
  - Night sweats [Unknown]
  - Dyspnoea [Unknown]
  - Blood creatinine increased [Unknown]
  - Blood alkaline phosphatase increased [Unknown]
  - Pericardial effusion [Unknown]
  - Respiratory tract infection [Unknown]
  - C-reactive protein increased [Unknown]
  - Rales [Unknown]
  - Chills [Unknown]
  - Cytomegalovirus infection [Unknown]
  - Cough [Unknown]
  - Aspartate aminotransferase increased [Unknown]
  - Tuberculosis [Unknown]
  - Malaise [Unknown]
  - Pyrexia [Unknown]
  - Tachycardia [Unknown]
